FAERS Safety Report 9960862 (Version 1)
Quarter: 2014Q1

REPORT INFORMATION
  Report Type: Spontaneous
  Country: US (occurrence: US)
  Receive Date: 20140305
  Receipt Date: 20140305
  Transmission Date: 20141002
  Serious: No
  Sender: FDA-Public Use
  Company Number: US-ABBVIE-13P-163-1109023-00

PATIENT
  Age: 32 Year
  Sex: Male
  Weight: 65.83 kg

DRUGS (11)
  1. HUMIRA [Suspect]
     Indication: COLITIS ULCERATIVE
     Route: 058
     Dates: start: 201302, end: 201302
  2. HUMIRA [Suspect]
     Route: 058
     Dates: start: 201302, end: 201302
  3. HUMIRA [Suspect]
     Dates: start: 201303, end: 201304
  4. HUMIRA [Suspect]
     Route: 058
     Dates: start: 201304, end: 201304
  5. HUMIRA [Suspect]
     Route: 058
     Dates: start: 201305, end: 201305
  6. HUMIRA [Suspect]
     Route: 058
     Dates: start: 201305
  7. UNKNOWN REJECTION MEDICATIONS [Concomitant]
     Indication: LIVER TRANSPLANT
  8. WARFARIN [Concomitant]
     Indication: THROMBOSIS PROPHYLAXIS
  9. LIALDA [Concomitant]
     Indication: COLITIS ULCERATIVE
  10. PREDNISONE [Concomitant]
     Indication: COLITIS ULCERATIVE
  11. BACTRIM [Concomitant]
     Indication: PROPHYLAXIS

REACTIONS (1)
  - Colitis ulcerative [Recovered/Resolved]
